FAERS Safety Report 9791574 (Version 2)
Quarter: 2014Q1

REPORT INFORMATION
  Report Type: Report from Study
  Country: ME (occurrence: ME)
  Receive Date: 20140101
  Receipt Date: 20140101
  Transmission Date: 20141002
  Serious: Yes (Death, Hospitalization)
  Sender: FDA-Public Use
  Company Number: ME-ROCHE-1309307

PATIENT
  Age: 65 Year
  Sex: Female
  Weight: 41.5 kg

DRUGS (9)
  1. METHOXY POLYETHYLENE GLYCOL-EPOETIN BETA [Suspect]
     Indication: NEPHROGENIC ANAEMIA
     Route: 058
     Dates: start: 20121112
  2. METHOXY POLYETHYLENE GLYCOL-EPOETIN BETA [Suspect]
     Route: 058
  3. MONOPRIL [Concomitant]
     Route: 048
  4. CONCOR [Concomitant]
     Route: 048
  5. LASIX [Concomitant]
     Route: 065
  6. CALCIUM CARBONATE [Concomitant]
     Route: 048
  7. CONTROLOC [Concomitant]
     Route: 048
  8. HEFEROL /00023505/ [Concomitant]
  9. FOLAN [Concomitant]

REACTIONS (2)
  - Death [Fatal]
  - Complication of device insertion [Recovering/Resolving]
